FAERS Safety Report 13865812 (Version 1)
Quarter: 2017Q3

REPORT INFORMATION
  Report Type: Spontaneous
  Country: CA (occurrence: CA)
  Receive Date: 20170814
  Receipt Date: 20170814
  Transmission Date: 20171127
  Serious: Yes (Other)
  Sender: FDA-Public Use
  Company Number: CA-BECTON DICKINSON-2017BDN00202

PATIENT
  Sex: Female

DRUGS (2)
  1. CHLORHEXIDINE [Suspect]
     Active Substance: CHLORHEXIDINE
     Indication: ANTIBIOTIC PROPHYLAXIS
     Route: 065
  2. ANTIBIOTIC PROPHYLAXIS [Concomitant]
     Route: 065

REACTIONS (2)
  - Postoperative wound infection [Unknown]
  - Maternal exposure during delivery [Recovered/Resolved]
